FAERS Safety Report 9743286 (Version 2)
Quarter: 2013Q4

REPORT INFORMATION
  Report Type: Spontaneous
  Country: US (occurrence: US)
  Receive Date: 20131210
  Receipt Date: 20131210
  Transmission Date: 20140711
  Serious: Yes (Hospitalization)
  Sender: FDA-Public Use
  Company Number: US-GILEAD-2009-0025490

PATIENT
  Sex: Female
  Weight: 42.64 kg

DRUGS (7)
  1. LETAIRIS [Suspect]
     Indication: PULMONARY ARTERIAL HYPERTENSION
     Route: 048
     Dates: start: 20090219, end: 20091017
  2. SPIRONOLACTONE [Concomitant]
  3. COUMADIN [Concomitant]
  4. LASIX [Concomitant]
  5. REMODULIN [Concomitant]
  6. REVATIO [Concomitant]
  7. PRILOSEC [Concomitant]

REACTIONS (1)
  - Oedema peripheral [Recovered/Resolved]
